FAERS Safety Report 21626805 (Version 3)
Quarter: 2022Q4

REPORT INFORMATION
  Report Type: Spontaneous
  Country: US (occurrence: None)
  Receive Date: 20221122
  Receipt Date: 20221201
  Transmission Date: 20230112
  Serious: Yes (Other)
  Sender: FDA-Public Use
  Company Number: US-ROCHE-3222368

PATIENT
  Sex: Male
  Weight: 91.708 kg

DRUGS (1)
  1. GAVRETO [Suspect]
     Active Substance: PRALSETINIB
     Indication: Non-small cell lung cancer
     Dosage: TAKES IT WITH WATER?ON 03/AUG/2022 LAST DOSE OF GAVRETO
     Route: 048
     Dates: start: 20210419, end: 20220803

REACTIONS (2)
  - Pneumonia [Unknown]
  - Hepatitis B [Unknown]

NARRATIVE: CASE EVENT DATE: 20221118
